FAERS Safety Report 15814310 (Version 3)
Quarter: 2019Q1

REPORT INFORMATION
  Report Type: Spontaneous
  Country: PT (occurrence: PT)
  Receive Date: 20190111
  Receipt Date: 20190125
  Transmission Date: 20190417
  Serious: Yes (Other)
  Sender: FDA-Public Use
  Company Number: PT-PFIZER INC-2019013341

PATIENT
  Age: 19 Year
  Sex: Male

DRUGS (4)
  1. AZITHROMYCIN ANHYDROUS. [Suspect]
     Active Substance: AZITHROMYCIN ANHYDROUS
     Dosage: UNK
     Route: 048
  2. LEPICORTINOLO [PREDNISOLONE] [Suspect]
     Active Substance: PREDNISOLONE
     Dosage: UNK
     Route: 048
  3. LERGONIX [Suspect]
     Active Substance: BILASTINE
     Dosage: UNK
     Route: 048
     Dates: start: 2016
  4. MAXILASE [Suspect]
     Active Substance: PANCRELIPASE
     Dosage: UNK
     Route: 048

REACTIONS (2)
  - Respiratory distress [Recovered/Resolved]
  - Angioedema [Recovered/Resolved]
